FAERS Safety Report 18190212 (Version 2)
Quarter: 2022Q4

REPORT INFORMATION
  Report Type: Spontaneous
  Country: US (occurrence: US)
  Receive Date: 20200825
  Receipt Date: 20221012
  Transmission Date: 20230113
  Serious: No
  Sender: FDA-Public Use
  Company Number: US-CELLTRION INC.-2019US026781

PATIENT

DRUGS (2)
  1. INFLECTRA [Suspect]
     Active Substance: INFLIXIMAB-DYYB
     Indication: Crohn^s disease
     Dosage: 5 MG/KG IV ON WEEKS 1, 3, 7 AND THEN Q 8 WEEKS
     Route: 042
     Dates: start: 201910
  2. INFLECTRA [Suspect]
     Active Substance: INFLIXIMAB-DYYB
     Indication: Anaemia

REACTIONS (3)
  - Anaemia [Unknown]
  - Off label use [Unknown]
  - Off label use [Unknown]
